FAERS Safety Report 7936773-0 (Version None)
Quarter: 2011Q4

REPORT INFORMATION
  Report Type: 
  Country: None (occurrence: None)
  Receive Date: 20111123
  Receipt Date: 20110926
  Transmission Date: 20120403
  Serious: Yes (Hospitalization)
  Sender: FDA-Public Use
  Company Number: US-ROCHE-1013596

PATIENT
  Age: 55 Year
  Sex: Female

DRUGS (6)
  1. HERCEPTIN [Suspect]
     Route: 042
     Dates: start: 20110509
  2. CARBOPLATIN [Suspect]
     Indication: BREAST CANCER
     Dosage: DOSE: 6 MG/ML
     Route: 042
     Dates: start: 20110405
  3. HERCEPTIN [Suspect]
     Indication: BREAST CANCER
     Route: 042
     Dates: start: 20110405
  4. DOCETAXEL [Suspect]
     Indication: BREAST CANCER
     Dosage: DOSE: 75 MG/MM
     Route: 042
     Dates: start: 20110405
  5. LAPATINIB [Suspect]
     Indication: BREAST CANCER
     Route: 048
     Dates: start: 20110405
  6. PEGFILGRASTIM [Concomitant]

REACTIONS (3)
  - SKIN ULCER [None]
  - RASH PRURITIC [None]
  - CELLULITIS [None]
